FAERS Safety Report 5602497-8 (Version None)
Quarter: 2008Q1

REPORT INFORMATION
  Report Type: 
  Country: None (occurrence: None)
  Receive Date: 20080125
  Receipt Date: 20080121
  Transmission Date: 20080703
  Serious: Yes (Death)
  Sender: FDA-Public Use
  Company Number: A0704367A

PATIENT
  Age: 49 Year
  Sex: Female

DRUGS (2)
  1. PAROXETINE [Suspect]
     Indication: MAJOR DEPRESSION
     Route: 065
  2. BENADRYL [Suspect]

REACTIONS (1)
  - DRUG LEVEL INCREASED [None]
